FAERS Safety Report 11743352 (Version 2)
Quarter: 2015Q4

REPORT INFORMATION
  Report Type: Spontaneous
  Country: US (occurrence: US)
  Receive Date: 20151116
  Receipt Date: 20151207
  Transmission Date: 20160304
  Serious: Yes (Disabling, Other)
  Sender: FDA-Public Use
  Company Number: US-PFIZER INC-2015388157

PATIENT
  Age: 61 Year
  Sex: Female
  Weight: 108 kg

DRUGS (2)
  1. PREMPRO [Suspect]
     Active Substance: ESTROGENS, CONJUGATED\MEDROXYPROGESTERONE ACETATE
     Dosage: 0.45 MG/1.5 MG, 1X/DAY
     Route: 048
  2. PREMPRO [Suspect]
     Active Substance: ESTROGENS, CONJUGATED\MEDROXYPROGESTERONE ACETATE
     Indication: MENOPAUSE
     Dosage: 0.45 MG/1.5 MG, 1X/DAY
     Route: 048
     Dates: start: 2013

REACTIONS (7)
  - Lung neoplasm malignant [Recovered/Resolved]
  - Fibromyalgia [Not Recovered/Not Resolved]
  - Essential tremor [Not Recovered/Not Resolved]
  - Anxiety [Unknown]
  - Emphysema [Not Recovered/Not Resolved]
  - Dyspnoea [Not Recovered/Not Resolved]
  - Chronic obstructive pulmonary disease [Not Recovered/Not Resolved]

NARRATIVE: CASE EVENT DATE: 2015
